FAERS Safety Report 17684282 (Version 1)
Quarter: 2020Q2

REPORT INFORMATION
  Report Type: Spontaneous
  Country: US (occurrence: US)
  Receive Date: 20200420
  Receipt Date: 20200420
  Transmission Date: 20200714
  Serious: Yes (Hospitalization)
  Sender: FDA-Public Use
  Company Number: US-SA-2020SA101889

PATIENT
  Sex: Female
  Weight: 49.89 kg

DRUGS (23)
  1. EPINEPHRINE. [Concomitant]
     Active Substance: EPINEPHRINE
  2. MULTIVITAMINS [VITAMINS NOS] [Concomitant]
     Active Substance: VITAMINS
  3. ZYRTEC [Concomitant]
     Active Substance: CETIRIZINE HYDROCHLORIDE
  4. NUCALA [Concomitant]
     Active Substance: MEPOLIZUMAB
  5. ACCOLATE [Concomitant]
     Active Substance: ZAFIRLUKAST
  6. ZOFRAN [Concomitant]
     Active Substance: ONDANSETRON HYDROCHLORIDE
  7. ZOLOFT [Concomitant]
     Active Substance: SERTRALINE HYDROCHLORIDE
  8. CLONAZEPAM. [Concomitant]
     Active Substance: CLONAZEPAM
  9. LYRICA [Concomitant]
     Active Substance: PREGABALIN
  10. PEPCID [ALUMINIUM HYDROXIDE GEL, DRIED;MAGNESIUM CARBONATE] [Concomitant]
     Active Substance: ALUMINUM HYDROXIDE\MAGNESIUM CARBONATE
  11. DIPHENHYDRAMINE. [Concomitant]
     Active Substance: DIPHENHYDRAMINE
  12. ACETAMINOPHEN. [Concomitant]
     Active Substance: ACETAMINOPHEN
  13. XARELTO [Concomitant]
     Active Substance: RIVAROXABAN
  14. CUVITRU [Concomitant]
     Active Substance: HUMAN IMMUNOGLOBULIN G
  15. CALCIUM + D3 [CALCIUM;COLECALCIFEROL] [Concomitant]
  16. CYMBALTA [Concomitant]
     Active Substance: DULOXETINE HYDROCHLORIDE
  17. DUPIXENT [Suspect]
     Active Substance: DUPILUMAB
     Dosage: 300 MG, QOW
     Route: 058
  18. VITAMIN D3 [Concomitant]
     Active Substance: CHOLECALCIFEROL
  19. SPIRIVA RESPIMAT [Concomitant]
     Active Substance: TIOTROPIUM BROMIDE
  20. DILAUDID [Concomitant]
     Active Substance: HYDROMORPHONE HYDROCHLORIDE
  21. NEXIUM [Concomitant]
     Active Substance: ESOMEPRAZOLE MAGNESIUM
  22. METHOTREXATE. [Concomitant]
     Active Substance: METHOTREXATE
  23. SYNTHROID [Concomitant]
     Active Substance: LEVOTHYROXINE SODIUM

REACTIONS (3)
  - Infusion related reaction [Unknown]
  - Headache [Unknown]
  - Asthma [Unknown]
